FAERS Safety Report 9928771 (Version 1)
Quarter: 2014Q1

REPORT INFORMATION
  Report Type: Spontaneous
  Country: US (occurrence: None)
  Receive Date: 20140221
  Receipt Date: 20140221
  Transmission Date: 20141002
  Serious: Yes (Death)
  Sender: FDA-Public Use
  Company Number: SYM-2013-10737

PATIENT
  Age: 78 Year
  Sex: Male

DRUGS (1)
  1. XENAZINE [Suspect]
     Indication: HUNTINGTON^S DISEASE
     Dosage: 3 IN 1 DAY
     Route: 048
     Dates: start: 20130814

REACTIONS (6)
  - Somnolence [None]
  - Weight decreased [None]
  - Emotional disorder [None]
  - Hyperphagia [None]
  - Choking [None]
  - Vomiting [None]
